FAERS Safety Report 6789487-7 (Version None)
Quarter: 2010Q2

REPORT INFORMATION
  Report Type: 
  Country: None (occurrence: None)
  Receive Date: 20100624
  Receipt Date: 20100617
  Transmission Date: 20101027
  Serious: Yes (Hospitalization)
  Sender: FDA-Public Use
  Company Number: US-BIOGENIDEC-2010BI014884

PATIENT
  Age: 52 Year
  Sex: Female
  Weight: 43 kg

DRUGS (1)
  1. TYSABRI [Suspect]
     Indication: CROHN'S DISEASE
     Route: 042
     Dates: start: 20090901

REACTIONS (3)
  - BLOOD POTASSIUM DECREASED [None]
  - DIARRHOEA [None]
  - SEPSIS [None]
